FAERS Safety Report 7396468-1 (Version None)
Quarter: 2011Q2

REPORT INFORMATION
  Report Type: 
  Country: None (occurrence: None)
  Receive Date: 20110406
  Receipt Date: 20110222
  Transmission Date: 20111010
  Serious: Yes (Hospitalization)
  Sender: FDA-Public Use
  Company Number: US-BAYER-2010-006949

PATIENT
  Sex: Female
  Weight: 104.76 kg

DRUGS (3)
  1. YASMIN [Suspect]
     Indication: CONTRACEPTION
     Dosage: 1 TAB / DAY
     Dates: start: 20051018, end: 20070924
  2. OCELLA [Suspect]
  3. IBUPROFEN [Concomitant]
     Indication: ANALGESIC THERAPY
     Dosage: 2 PILLS EVERY 6 - 8 HOURS

REACTIONS (8)
  - DIARRHOEA [None]
  - GROIN PAIN [None]
  - PALPITATIONS [None]
  - TACHYCARDIA [None]
  - OEDEMA PERIPHERAL [None]
  - VOMITING [None]
  - DEEP VEIN THROMBOSIS [None]
  - PAIN IN EXTREMITY [None]
